FAERS Safety Report 18345574 (Version 2)
Quarter: 2020Q4

REPORT INFORMATION
  Report Type: Spontaneous
  Country: FR (occurrence: FR)
  Receive Date: 20201005
  Receipt Date: 20201014
  Transmission Date: 20210114
  Serious: Yes (Hospitalization)
  Sender: FDA-Public Use
  Company Number: FR-BRISTOL-MYERS SQUIBB COMPANY-BMS-2020-078543

PATIENT
  Age: 61 Year
  Sex: Female
  Weight: 68 kg

DRUGS (2)
  1. REYATAZ [Suspect]
     Active Substance: ATAZANAVIR SULFATE
     Indication: HIV INFECTION
     Dosage: 300 MILLIGRAM, PER DAY
     Route: 048
     Dates: start: 201609, end: 20200722
  2. PIFELTRO [Concomitant]
     Active Substance: DORAVIRINE
     Indication: HIV INFECTION
     Dosage: 1  DOSAGE FORM, PER DAY
     Route: 048
     Dates: start: 20200722

REACTIONS (2)
  - Calculus urinary [Recovered/Resolved with Sequelae]
  - Haematuria [Recovered/Resolved]

NARRATIVE: CASE EVENT DATE: 20200829
